FAERS Safety Report 8791184 (Version 1)
Quarter: 2012Q4

REPORT INFORMATION
  Report Type: Spontaneous
  Country: US (occurrence: None)
  Receive Date: 20120914
  Receipt Date: 20120914
  Transmission Date: 20130627
  Serious: Yes (Death, Hospitalization)
  Sender: FDA-Public Use
  Company Number: None

PATIENT
  Age: 89 Year
  Sex: Female
  Weight: 106.2 kg

DRUGS (10)
  1. COUMADIN [Suspect]
     Indication: ATRIAL FIBRILLATION
     Dosage: 2 MG ALT WITH 1.5MG EOD PO
     Route: 048
  2. ASA [Suspect]
     Indication: CARDIAC VALVULOPATHY
     Route: 048
  3. SINGULAR [Concomitant]
  4. TYLENOL [Concomitant]
  5. DIOVAN [Concomitant]
  6. LASIX [Concomitant]
  7. METOPROLOL [Concomitant]
  8. COLACE [Concomitant]
  9. KLOR-CON [Concomitant]
  10. REMERON [Concomitant]

REACTIONS (6)
  - Haemorrhage intracranial [None]
  - Coagulopathy [None]
  - Pupillary reflex impaired [None]
  - Areflexia [None]
  - Hypotension [None]
  - Heart rate decreased [None]
